FAERS Safety Report 20410774 (Version 1)
Quarter: 2022Q1

REPORT INFORMATION
  Report Type: Spontaneous
  Country: US (occurrence: None)
  Receive Date: 20220131
  Receipt Date: 20220131
  Transmission Date: 20220423
  Serious: Yes (Life-Threatening, Other)
  Sender: FDA-Public Use
  Company Number: None

PATIENT
  Age: 27 Year
  Weight: 141.75 kg

DRUGS (8)
  1. STOMACH RELIEF - REGULAR STRENGTH [Suspect]
     Active Substance: BISMUTH SUBSALICYLATE
     Indication: Diarrhoea
     Dosage: OTHER QUANTITY : 30 CHEWABLE TABLETS;?FREQUENCY : AS NEEDED;?
     Route: 048
     Dates: start: 20220126, end: 20220126
  2. LITHIUM [Concomitant]
     Active Substance: LITHIUM
  3. sarequil [Concomitant]
  4. OMEPRAZOLE [Concomitant]
     Active Substance: OMEPRAZOLE
  5. LISINOPRIL [Concomitant]
     Active Substance: LISINOPRIL
  6. TESTOSTERONE [Concomitant]
     Active Substance: TESTOSTERONE
  7. IBUPROFEN [Concomitant]
     Active Substance: IBUPROFEN
  8. BENADRYL [Concomitant]
     Active Substance: DIPHENHYDRAMINE HYDROCHLORIDE

REACTIONS (6)
  - Urticaria [None]
  - Lip swelling [None]
  - Paraesthesia oral [None]
  - Throat tightness [None]
  - Skin disorder [None]
  - Skin burning sensation [None]

NARRATIVE: CASE EVENT DATE: 20220126
